FAERS Safety Report 14774280 (Version 6)
Quarter: 2018Q4

REPORT INFORMATION
  Report Type: Spontaneous
  Country: CA (occurrence: CA)
  Receive Date: 20180418
  Receipt Date: 20181120
  Transmission Date: 20190204
  Serious: Yes (Other)
  Sender: FDA-Public Use
  Company Number: CA-CELLTRION INC.-2017CA002853

PATIENT

DRUGS (11)
  1. SIMPONI [Concomitant]
     Active Substance: GOLIMUMAB
  2. INFLECTRA [Suspect]
     Active Substance: INFLIXIMAB-DYYB
     Dosage: 300 MG, CYCLIC EVERY 8 WEEKS
     Route: 042
     Dates: start: 20180718
  3. ACETAMINOPHEN. [Concomitant]
     Active Substance: ACETAMINOPHEN
     Dosage: UNK, AS NEEDED
  4. INFLECTRA [Suspect]
     Active Substance: INFLIXIMAB-DYYB
     Dosage: 300 MG,EVERY 8 WEEKS
     Route: 042
     Dates: start: 20180910
  5. INFLECTRA [Suspect]
     Active Substance: INFLIXIMAB-DYYB
     Dosage: 300 MG,EVERY 8 WEEKS
     Route: 042
     Dates: start: 20181106
  6. OMEPRAZOLE. [Concomitant]
     Active Substance: OMEPRAZOLE
     Dosage: UNK
  7. INFLECTRA [Suspect]
     Active Substance: INFLIXIMAB-DYYB
     Indication: ANKYLOSING SPONDYLITIS
     Dosage: 300 MG, CYCLIC(EVERY 0,2,6 WEEKS THEN EVERY 8 WEEKS FOR 12 MONTHS)
     Route: 042
     Dates: start: 20170120
  8. INFLECTRA [Suspect]
     Active Substance: INFLIXIMAB-DYYB
     Dosage: 300 MG, CYCLIC EVERY 8 WEEKS
     Route: 042
     Dates: start: 20180521
  9. NAPROXEN. [Concomitant]
     Active Substance: NAPROXEN
     Dosage: 500 MG, 2X/DAY
     Route: 048
  10. INFLECTRA [Suspect]
     Active Substance: INFLIXIMAB-DYYB
     Dosage: 300 MG,EVERY 8 WEEKS
     Route: 042
  11. INFLECTRA [Suspect]
     Active Substance: INFLIXIMAB-DYYB
     Dosage: 300 MG, CYCLIC THEN EVERY 8 WEEKS FOR 12 MONTHS
     Route: 042
     Dates: start: 20180405

REACTIONS (6)
  - Back pain [Recovered/Resolved]
  - Heart rate decreased [Unknown]
  - Heart rate abnormal [Unknown]
  - Disease recurrence [Unknown]
  - Product use issue [Unknown]
  - Weight decreased [Unknown]

NARRATIVE: CASE EVENT DATE: 20170120
